FAERS Safety Report 6429938-0 (Version None)
Quarter: 2009Q4

REPORT INFORMATION
  Report Type: 
  Country: None (occurrence: None)
  Receive Date: 20091106
  Receipt Date: 20091029
  Transmission Date: 20100525
  Serious: Yes (Hospitalization)
  Sender: FDA-Public Use
  Company Number: GB-JNJFOC-20091009096

PATIENT
  Age: 20 Year
  Sex: Female

DRUGS (2)
  1. RISPERDAL [Suspect]
     Dosage: 5 DAYS
     Route: 048
  2. RISPERDAL [Suspect]
     Indication: MUCOPOLYSACCHARIDOSIS III
     Route: 048

REACTIONS (6)
  - EATING DISORDER [None]
  - IMMOBILE [None]
  - OFF LABEL USE [None]
  - OVERDOSE [None]
  - TACHYCARDIA [None]
  - WEIGHT DECREASED [None]
